FAERS Safety Report 19466426 (Version 1)
Quarter: 2021Q2

REPORT INFORMATION
  Report Type: Spontaneous
  Country: US (occurrence: US)
  Receive Date: 20210628
  Receipt Date: 20210628
  Transmission Date: 20210717
  Serious: Yes (Other)
  Sender: FDA-Public Use
  Company Number: US-AUROBINDO-AUR-APL-2021-026133

PATIENT
  Age: 24 Year
  Sex: Male

DRUGS (5)
  1. POLYMYXIN B. [Suspect]
     Active Substance: POLYMYXIN B
     Dosage: 1.5 MILLIGRAM/KILOGRAM//DOSE TWO TIMES A DAY
     Route: 042
  2. TIGECYCLINE. [Suspect]
     Active Substance: TIGECYCLINE
     Indication: PNEUMONIA KLEBSIELLA
     Dosage: 100 MILLIGRAM, TWO TIMES A DAY
     Route: 042
  3. TIGECYCLINE. [Suspect]
     Active Substance: TIGECYCLINE
     Dosage: 50 MILLIGRAM, TWO TIMES A DAY
     Route: 042
  4. GENTAMICIN. [Suspect]
     Active Substance: GENTAMICIN
     Indication: PNEUMONIA KLEBSIELLA
     Dosage: 5 MILLIGRAM/KILOGRAM/DOSE ONCE A DAY
     Route: 042
  5. POLYMYXIN B. [Suspect]
     Active Substance: POLYMYXIN B
     Indication: PNEUMONIA KLEBSIELLA
     Dosage: 2.5 MILLIGRAM/KILOGRAM OF BODY WEIGHT/DOSE, TWO TIMES A DAY
     Route: 042

REACTIONS (5)
  - Renal tubular disorder [Recovered/Resolved]
  - Hypokalaemia [Recovered/Resolved]
  - Blood creatinine increased [Recovered/Resolved]
  - Treatment failure [Recovered/Resolved]
  - Hypomagnesaemia [Recovered/Resolved]
